FAERS Safety Report 8523382-8 (Version None)
Quarter: 2012Q3

REPORT INFORMATION
  Report Type: 
  Country: None (occurrence: None)
  Receive Date: 20120720
  Receipt Date: 20120712
  Transmission Date: 20120928
  Serious: Yes (Hospitalization, Other)
  Sender: FDA-Public Use
  Company Number: US-BAYER-2012-070973

PATIENT
  Age: 36 Year
  Sex: Female
  Weight: 112.47 kg

DRUGS (11)
  1. LEVAQUIN [Concomitant]
     Indication: WOUND INFECTION
  2. PROVENTIL [Concomitant]
     Dosage: TWO PUFFS EVERY 4 TO 6 HOURS,
     Route: 045
  3. YASMIN [Suspect]
  4. FLAGYL [Concomitant]
     Indication: WOUND INFECTION
  5. MULTI-VITAMINS [Concomitant]
  6. ULTRAM [Concomitant]
  7. PERCOCET [Concomitant]
  8. YAZ [Suspect]
  9. LISINOPRILHYDROCHLOROTHIAZIDE RATIOPHARM [Concomitant]
     Indication: HYPERTENSION
     Dosage: 20-12.5 MG DAILY
     Route: 048
  10. BETAMETHASONE DIPROPIONATE [Concomitant]
     Dosage: 0.05% CREAM, APPLY TO AFFECTED AREA
     Route: 061
  11. CLONIDINE [Concomitant]
     Indication: HYPERTENSION

REACTIONS (2)
  - DEEP VEIN THROMBOSIS [None]
  - PULMONARY EMBOLISM [None]
